FAERS Safety Report 8579783-5 (Version None)
Quarter: 2012Q3

REPORT INFORMATION
  Report Type: 
  Country: None (occurrence: None)
  Receive Date: 20120808
  Receipt Date: 20120802
  Transmission Date: 20120928
  Serious: Yes (Other)
  Sender: FDA-Public Use
  Company Number: NL-VERTEX PHARMACEUTICALS INC.-000000000000000887

PATIENT
  Sex: Male
  Weight: 96 kg

DRUGS (4)
  1. SPIRONOLACTONE [Concomitant]
     Indication: OEDEMA
  2. PEGINTERFERON ALFA-2A [Concomitant]
     Indication: HEPATITIS C
     Dosage: DOSAGE FORM: UNSPECIFIED
     Route: 065
  3. INCIVO [Suspect]
     Indication: HEPATITIS C
     Dosage: DOSAGE FORM: TABLET, STARTED 6 WEEKS AGO
     Route: 048
     Dates: start: 20120417, end: 20120713
  4. PEGINTERFERON ALFA-2A [Concomitant]
     Dosage: DOSAGE FORM: UNSPECIFIED
     Route: 065

REACTIONS (4)
  - THROMBOCYTOPENIA [None]
  - MUSCLE SPASMS [None]
  - ANAEMIA [None]
  - LEUKOPENIA [None]
